FAERS Safety Report 8804100 (Version 1)
Quarter: 2012Q4

REPORT INFORMATION
  Report Type: 
  Country: AT (occurrence: AT)
  Receive Date: 20120924
  Receipt Date: 20120924
  Transmission Date: 20130627
  Serious: Yes (Hospitalization)
  Sender: FDA-Public Use
  Company Number: AT-JNJFOC-20120905453

PATIENT
  Age: 72 Year
  Sex: Male

DRUGS (8)
  1. SIMPONI [Suspect]
     Indication: RHEUMATOID ARTHRITIS
     Route: 058
  2. METHOTREXATE [Concomitant]
     Route: 065
  3. FUROSEMIDE [Concomitant]
     Route: 065
  4. LORNOXICAM [Concomitant]
     Route: 065
  5. ALL OTHER THERAPEUTICS [Concomitant]
     Route: 065
  6. TRAMADOL HYDROCHLORIDE [Concomitant]
     Route: 065
  7. CANDESARTAN CILEXETIL [Concomitant]
     Route: 065
  8. COLECALCIFEROL-CHOLESTERIN [Concomitant]
     Route: 065

REACTIONS (2)
  - Intraventricular haemorrhage [Recovered/Resolved]
  - Basal ganglia haemorrhage [Recovered/Resolved]
